FAERS Safety Report 20193896 (Version 1)
Quarter: 2021Q4

REPORT INFORMATION
  Report Type: Spontaneous
  Country: US (occurrence: US)
  Receive Date: 20211216
  Receipt Date: 20211216
  Transmission Date: 20220303
  Serious: Yes (Hospitalization, Other)
  Sender: FDA-Public Use
  Company Number: US-SA-2021SA409275

PATIENT
  Age: 34 Year
  Sex: Female

DRUGS (6)
  1. HYDROCORTISONE [Suspect]
     Active Substance: HYDROCORTISONE
     Indication: Lumbar radiculopathy
     Dosage: INJECTION
     Route: 008
  2. HYDROCORTISONE [Suspect]
     Active Substance: HYDROCORTISONE
     Indication: Sciatica
     Dosage: INJECTION
     Route: 008
  3. HYDROCORTISONE [Suspect]
     Active Substance: HYDROCORTISONE
     Dosage: INJECTION
     Route: 008
  4. SODIUM CHLORIDE [Concomitant]
     Active Substance: SODIUM CHLORIDE
     Indication: Vehicle solution use
     Dosage: ALONG WITH HYDROCORTISONE
     Route: 050
  5. SODIUM CHLORIDE [Concomitant]
     Active Substance: SODIUM CHLORIDE
     Dosage: ALONG WITH HYDROCORTISONE
     Route: 050
  6. SODIUM CHLORIDE [Concomitant]
     Active Substance: SODIUM CHLORIDE
     Dosage: ALONG WITH HYDROCORTISONE
     Route: 050

REACTIONS (10)
  - Meningitis bacterial [Recovered/Resolved]
  - Pyrexia [Recovered/Resolved]
  - Headache [Recovered/Resolved]
  - Photophobia [Recovered/Resolved]
  - Musculoskeletal stiffness [Recovered/Resolved]
  - Lethargy [Recovered/Resolved]
  - Injection site cellulitis [Recovered/Resolved]
  - Rash erythematous [Recovered/Resolved]
  - Injection site warmth [Recovered/Resolved]
  - Injection site pain [Recovered/Resolved]
